FAERS Safety Report 7055371-7 (Version None)
Quarter: 2010Q4

REPORT INFORMATION
  Report Type: 
  Country: None (occurrence: None)
  Receive Date: 20101021
  Receipt Date: 20101008
  Transmission Date: 20110411
  Serious: Yes (Hospitalization, Other)
  Sender: FDA-Public Use
  Company Number: PHEH2007US04432

PATIENT
  Sex: Female

DRUGS (10)
  1. AREDIA [Suspect]
     Indication: BONE NEOPLASM MALIGNANT
     Dosage: UNK
     Route: 042
     Dates: end: 20060101
  2. FEMARA [Concomitant]
     Dosage: 2.5MG
  3. ASPIRIN [Concomitant]
  4. NORVASC [Concomitant]
  5. TOPROL-XL [Concomitant]
  6. FLUOXETINE [Concomitant]
  7. LASIX [Concomitant]
  8. ARANESP [Concomitant]
  9. ALTACE [Concomitant]
  10. PREDNISONE [Concomitant]
     Dosage: 10 MG, QD

REACTIONS (100)
  - ABDOMINAL DISTENSION [None]
  - ABDOMINAL PAIN [None]
  - ABDOMINAL PAIN UPPER [None]
  - ALLERGIC COUGH [None]
  - ANAEMIA [None]
  - ANGIOEDEMA [None]
  - ANHEDONIA [None]
  - ANXIETY [None]
  - AORTIC BRUIT [None]
  - AORTIC VALVE INCOMPETENCE [None]
  - APHAGIA [None]
  - APHTHOUS STOMATITIS [None]
  - ARRHYTHMIA [None]
  - ARTHRALGIA [None]
  - BACK PAIN [None]
  - BLOOD CHOLESTEROL INCREASED [None]
  - BLOOD CREATININE INCREASED [None]
  - BLOOD GLUCOSE INCREASED [None]
  - BLOOD UREA INCREASED [None]
  - BONE DENSITY DECREASED [None]
  - BONE DISORDER [None]
  - BURSITIS [None]
  - CARDIAC FAILURE CONGESTIVE [None]
  - CARDIAC MURMUR [None]
  - CARDIAC VALVE SCLEROSIS [None]
  - CATARACT [None]
  - CATARACT OPERATION [None]
  - CATHETER PLACEMENT [None]
  - CONFUSIONAL STATE [None]
  - CONSTIPATION [None]
  - DEFORMITY [None]
  - DEHYDRATION [None]
  - DEMENTIA ALZHEIMER'S TYPE [None]
  - DEPRESSION [None]
  - DIPLOPIA [None]
  - DISCOMFORT [None]
  - DIVERTICULUM [None]
  - DIZZINESS [None]
  - DYSPHAGIA [None]
  - DYSPNOEA [None]
  - EMOTIONAL DISTRESS [None]
  - EXOSTOSIS [None]
  - FALL [None]
  - FATIGUE [None]
  - GASTROINTESTINAL PAIN [None]
  - GASTROOESOPHAGEAL REFLUX DISEASE [None]
  - HAEMORRHAGIC DIATHESIS [None]
  - HEART RATE INCREASED [None]
  - HEART RATE IRREGULAR [None]
  - HIATUS HERNIA [None]
  - HYPERCHOLESTEROLAEMIA [None]
  - HYPERTENSION [None]
  - HYPOPHAGIA [None]
  - HYSTERECTOMY [None]
  - ILEUS PARALYTIC [None]
  - IMPAIRED HEALING [None]
  - INCREASED TENDENCY TO BRUISE [None]
  - INJURY [None]
  - INTERVERTEBRAL DISC PROTRUSION [None]
  - INTRACRANIAL ANEURYSM [None]
  - LEFT VENTRICULAR HYPERTROPHY [None]
  - LIFE EXPECTANCY SHORTENED [None]
  - LIPIDS INCREASED [None]
  - LUNG NEOPLASM [None]
  - METASTASES TO BONE [None]
  - MITRAL VALVE PROLAPSE [None]
  - MUSCLE SPASMS [None]
  - MUSCULOSKELETAL PAIN [None]
  - MYALGIA [None]
  - NAUSEA [None]
  - NEUROPATHY PERIPHERAL [None]
  - OEDEMA PERIPHERAL [None]
  - ORAL DISORDER [None]
  - ORAL SURGERY [None]
  - OSTEOARTHRITIS [None]
  - OSTEONECROSIS OF JAW [None]
  - PAIN [None]
  - PALPITATIONS [None]
  - PHYSICAL DISABILITY [None]
  - PNEUMONIA [None]
  - PRODUCTIVE COUGH [None]
  - PURULENT DISCHARGE [None]
  - PYREXIA [None]
  - REFLUX OESOPHAGITIS [None]
  - RENAL FAILURE [None]
  - RESTLESS LEGS SYNDROME [None]
  - RHINITIS ALLERGIC [None]
  - ROTATOR CUFF SYNDROME [None]
  - SCAPULA FRACTURE [None]
  - SCOLIOSIS [None]
  - SMALL INTESTINAL OBSTRUCTION [None]
  - SPINAL COLUMN STENOSIS [None]
  - SPINAL OSTEOARTHRITIS [None]
  - SWELLING [None]
  - TOOTH EXTRACTION [None]
  - URINARY TRACT INFECTION [None]
  - VITREOUS FLOATERS [None]
  - VOMITING [None]
  - WEIGHT DECREASED [None]
  - WHEEZING [None]
